FAERS Safety Report 20471513 (Version 1)
Quarter: 2022Q1

REPORT INFORMATION
  Report Type: Spontaneous
  Country: US (occurrence: US)
  Receive Date: 20220214
  Receipt Date: 20220214
  Transmission Date: 20220423
  Serious: No
  Sender: FDA-Public Use
  Company Number: US-PFIZER INC-202200215695

PATIENT

DRUGS (1)
  1. XELJANZ [Suspect]
     Active Substance: TOFACITINIB CITRATE
     Indication: Rheumatoid arthritis
     Dosage: 10 MG (5 MILLIGRAM IN THE MORNING, 5 MILLIGRAM AT NIGHT)
     Dates: start: 2015

REACTIONS (12)
  - Drug ineffective [Unknown]
  - Intentional product misuse [Unknown]
  - Asthenia [Recovered/Resolved]
  - Fatigue [Unknown]
  - Somnolence [Recovering/Resolving]
  - Pain [Recovering/Resolving]
  - Nausea [Unknown]
  - Rhinorrhoea [Unknown]
  - Chest pain [Unknown]
  - Depressed mood [Unknown]
  - Anger [Unknown]
  - Blood disorder [Unknown]

NARRATIVE: CASE EVENT DATE: 20210101
